FAERS Safety Report 15752221 (Version 3)
Quarter: 2022Q1

REPORT INFORMATION
  Report Type: Report from Study
  Country: DE (occurrence: DE)
  Receive Date: 20181221
  Receipt Date: 20220302
  Transmission Date: 20220424
  Serious: Yes (Death, Disabling, Congenital Anomaly, Other)
  Sender: FDA-Public Use
  Company Number: DE-JNJFOC-20150801224

PATIENT

DRUGS (23)
  1. RIVAROXABAN [Suspect]
     Active Substance: RIVAROXABAN
     Indication: Product used for unknown indication
     Dosage: GESTATIONAL WEEK 0-5
     Route: 064
  2. ASPIRIN [Suspect]
     Active Substance: ASPIRIN
     Indication: Product used for unknown indication
     Dosage: 100 MG, QD, GESTATIONAL WEEK 0-14
     Route: 064
     Dates: start: 20111214, end: 20120320
  3. ALISKIREN [Suspect]
     Active Substance: ALISKIREN
     Dosage: 300 MG, QD, GESTATIONAL WEEK 0-5
     Route: 064
     Dates: start: 20111214, end: 20120117
  4. HYDROXYCHLOROQUINE [Suspect]
     Active Substance: HYDROXYCHLOROQUINE
     Dosage: 400 MG, QD, GESTATIONAL WEEK 0-14
     Route: 064
     Dates: end: 20120320
  5. RAMIPRIL [Suspect]
     Active Substance: RAMIPRIL
     Dosage: 20 MG, QD, GESTATIONAL WEEK 0-13+6
     Route: 064
     Dates: start: 20111214, end: 20120320
  6. EZETIMIBE [Suspect]
     Active Substance: EZETIMIBE
     Dosage: GESTATIONAL WEEK 0-14
     Route: 064
  7. TORSEMIDE [Suspect]
     Active Substance: TORSEMIDE
     Dosage: 100 MG, QD, GESTATIONAL WEEK 0-14
     Route: 064
     Dates: start: 20111214, end: 20120320
  8. ALBUTEROL [Suspect]
     Active Substance: ALBUTEROL
     Dosage: GESTATIONAL WEEK 0-14
     Route: 064
  9. METAMIZOLE [Suspect]
     Active Substance: METAMIZOLE
     Dosage: GESTATIONAL WEEK 0-14
     Route: 064
  10. PREDNISOLONE [Suspect]
     Active Substance: PREDNISOLONE
     Dosage: 10 MG, BID, GESTATIONAL WEEK 0-14
     Route: 064
     Dates: start: 20111214, end: 20120320
  11. PANTOPRAZOLE [Suspect]
     Active Substance: PANTOPRAZOLE
     Dosage: 40 MG, QD, GESTATIONAL WEEK 0-14
     Route: 064
     Dates: start: 20111214, end: 20120320
  12. DALTEPARIN SODIUM [Suspect]
     Active Substance: DALTEPARIN SODIUM
     Dosage: GESTATIONAL WEEK 6-14
     Route: 064
  13. DALTEPARIN SODIUM [Suspect]
     Active Substance: DALTEPARIN SODIUM
     Dosage: UNK
     Route: 064
  14. UNSPECIFIED INGREDIENT [Suspect]
     Active Substance: UNSPECIFIED INGREDIENT
     Dosage: UNK
     Route: 064
  15. METAMIZOLE [Suspect]
     Active Substance: METAMIZOLE
     Dosage: , TRIMESTER: FIRST; PROBABLY ONLY IN HOSPITAL IN WEEK 5UNK
     Route: 064
  16. ENOXAPARIN SODIUM [Suspect]
     Active Substance: ENOXAPARIN SODIUM
     Dosage: 200 MG, BID
     Route: 064
  17. RITUXIMAB [Suspect]
     Active Substance: RITUXIMAB
     Dosage: UNK, LAST TIME IN DECEMBER 2011, PRE OR PERICONCEPTIONAL
     Route: 064
  18. TACROLIMUS [Suspect]
     Active Substance: TACROLIMUS
     Indication: Product used for unknown indication
     Dosage: 6 MG, QD, GESTATIONAL WEEK 0-14
     Route: 064
     Dates: start: 20111214, end: 20120320
  19. SIMVASTATIN [Suspect]
     Active Substance: SIMVASTATIN
     Indication: Product used for unknown indication
     Dosage: GESTATIONAL WEEK 0-14
     Route: 064
  20. NICOTINE [Suspect]
     Active Substance: NICOTINE
     Indication: Product used for unknown indication
     Dosage: GESTATIONAL WEEK 0-14
     Route: 064
  21. CYTOTEC [Concomitant]
     Active Substance: MISOPROSTOL
     Indication: Abortion induced
     Dosage: UNK, GESTATIONAL WEEK 13.6
     Route: 064
     Dates: start: 20120320, end: 20120320
  22. MIFEPRISTONE [Concomitant]
     Active Substance: MIFEPRISTONE
     Indication: Abortion induced
     Dosage: UNK, GESTATIONAL WEEK 13.6
     Route: 064
  23. CYCLOPHOSPHAMIDE [Concomitant]
     Active Substance: CYCLOPHOSPHAMIDE
     Dosage: UNK, 3000 MG CUMULATIVE; PRECONCEPTIONAL
     Route: 064

REACTIONS (7)
  - Ventricular septal defect [Fatal]
  - Truncus arteriosus persistent [Fatal]
  - Heart disease congenital [Fatal]
  - Congenital cardiovascular anomaly [Fatal]
  - Cardiac septal defect [Fatal]
  - Low birth weight baby [Unknown]
  - Foetal exposure during pregnancy [Fatal]
